FAERS Safety Report 9773532 (Version 1)
Quarter: 2013Q4

REPORT INFORMATION
  Report Type: Spontaneous
  Country: DK (occurrence: NL)
  Receive Date: 20131219
  Receipt Date: 20131219
  Transmission Date: 20140711
  Serious: Yes (Hospitalization)
  Sender: FDA-Public Use
  Company Number: NL-FRI-1000052317

PATIENT
  Age: 68 Year
  Sex: Female

DRUGS (1)
  1. CITALOPRAM [Suspect]
     Dosage: 1 OTHER DOSE PER DAY
     Route: 048
     Dates: start: 20131004

REACTIONS (3)
  - Nausea [Recovered/Resolved]
  - Tongue dry [Recovered/Resolved]
  - Syncope [Recovered/Resolved]
